FAERS Safety Report 7522485-4 (Version None)
Quarter: 2011Q2

REPORT INFORMATION
  Report Type: 
  Country: None (occurrence: None)
  Receive Date: 20110525
  Receipt Date: 20110510
  Transmission Date: 20111010
  Serious: Yes (Other)
  Sender: FDA-Public Use
  Company Number: AUR-APL-2011-01714

PATIENT
  Age: 63 Year
  Sex: Female
  Weight: 92.06 kg

DRUGS (7)
  1. VENLAFAXINE HCL [Suspect]
     Indication: DEPRESSION
     Dosage: 225MG-DAILY-ORAL
     Route: 048
     Dates: start: 20090801, end: 20101201
  2. UNSPECIFIED MEDICATION FOR HIGH CHOLESTEROL [Concomitant]
  3. ZOLOFT [Concomitant]
  4. UNSPECIFIED MEDICATION FOR HIGH BLOOD PRESSURE [Concomitant]
  5. VENLAFAXINE HCL [Suspect]
     Indication: DEPRESSION
     Dosage: 225MG-DAILY-ORAL
     Route: 048
     Dates: start: 20090801, end: 20101201
  6. EFFEXOR XR [Suspect]
     Indication: DEPRESSION
     Dosage: 225MG-DAILY-ORAL
     Route: 048
     Dates: start: 20101201, end: 20110406
  7. EFFEXOR XR [Suspect]
     Indication: DEPRESSION
     Dosage: 225MG-DAILY-ORAL
     Route: 048
     Dates: end: 20090801

REACTIONS (12)
  - DRUG INEFFECTIVE [None]
  - FATIGUE [None]
  - DISTURBANCE IN ATTENTION [None]
  - COMPLETED SUICIDE [None]
  - DECREASED INTEREST [None]
  - DECREASED APPETITE [None]
  - CRYING [None]
  - PRODUCT SUBSTITUTION ISSUE [None]
  - WEIGHT DECREASED [None]
  - SUICIDAL IDEATION [None]
  - DEPRESSION [None]
  - MOOD ALTERED [None]
